FAERS Safety Report 9685568 (Version 1)
Quarter: 2013Q4

REPORT INFORMATION
  Report Type: Spontaneous
  Country: US (occurrence: US)
  Receive Date: 20131113
  Receipt Date: 20131113
  Transmission Date: 20140711
  Serious: Yes (Hospitalization, Other)
  Sender: FDA-Public Use
  Company Number: US-NOVOPROD-392136

PATIENT
  Age: 68 Year
  Sex: Male

DRUGS (1)
  1. LEVEMIR FLEXPEN [Suspect]
     Indication: PRODUCT USED FOR UNKNOWN INDICATION
     Dosage: UNKNOWN
     Route: 058
     Dates: start: 201303

REACTIONS (6)
  - Pneumonia [Unknown]
  - Investigation [Unknown]
  - Mental disorder [Unknown]
  - Loss of consciousness [Unknown]
  - Head injury [Unknown]
  - Rash [Unknown]
